FAERS Safety Report 10040857 (Version 1)
Quarter: 2014Q1

REPORT INFORMATION
  Report Type: Spontaneous
  Country: US (occurrence: US)
  Receive Date: 20140327
  Receipt Date: 20140327
  Transmission Date: 20141002
  Serious: No
  Sender: FDA-Public Use
  Company Number: US-PFIZER INC-2014083408

PATIENT
  Sex: Male

DRUGS (2)
  1. TIKOSYN [Suspect]
     Dosage: 250 UG, UNK
     Dates: end: 201308
  2. TIKOSYN [Suspect]
     Dosage: 125 UG, UNK
     Dates: start: 201308

REACTIONS (1)
  - Heart rate abnormal [Unknown]
